FAERS Safety Report 8269985-X (Version None)
Quarter: 2012Q2

REPORT INFORMATION
  Report Type: 
  Country: None (occurrence: None)
  Receive Date: 20120410
  Receipt Date: 20120328
  Transmission Date: 20120825
  Serious: No
  Sender: FDA-Public Use
  Company Number: US-BAYER-2012-031621

PATIENT
  Age: 58 Year
  Sex: Female

DRUGS (7)
  1. RITALIN [Concomitant]
  2. NEXAVAR [Suspect]
     Indication: THYROID CANCER
     Dosage: 200 MG, 1Q AM AND 2 Q PM
     Route: 048
  3. SYNTHROID [Concomitant]
  4. ONDANSETRON [Concomitant]
  5. COMPAZINE [Concomitant]
  6. FLEXERIL [Concomitant]
  7. LORTAB [Concomitant]

REACTIONS (2)
  - DIARRHOEA [None]
  - FATIGUE [None]
